FAERS Safety Report 5493091-0 (Version None)
Quarter: 2007Q4

REPORT INFORMATION
  Report Type: 
  Country: None (occurrence: None)
  Receive Date: 20071019
  Receipt Date: 20071003
  Transmission Date: 20080405
  Serious: Yes (Hospitalization)
  Sender: FDA-Public Use
  Company Number: 2007AP000703

PATIENT
  Age: 58 Year
  Sex: Female

DRUGS (10)
  1. VALPROATE SODIUM [Suspect]
     Indication: BIPOLAR DISORDER
     Dosage: 500 MG; TAB; PO; BID; 1500 MG; TAB; PO; QD; 1000 MG;T AB; PO; QD
     Route: 048
     Dates: start: 20030101
  2. TEMAZEPAM [Concomitant]
  3. TRAZODONE HCL [Concomitant]
  4. HYDROBROMIDE (HYDROMORPHONE) [Concomitant]
  5. LOSARTAN POTASSIUM [Concomitant]
  6. PROCYCLIDINE HYDROCHLORIDE 2MG TAB [Concomitant]
  7. LORAZEPAM [Concomitant]
  8. DIAZEPAM [Concomitant]
  9. ACETYLSALICYLIC ACID SRT [Concomitant]
  10. ROFECOXIB [Concomitant]

REACTIONS (5)
  - CONVULSION [None]
  - DRUG LEVEL DECREASED [None]
  - ILL-DEFINED DISORDER [None]
  - MOVEMENT DISORDER [None]
  - NECK PAIN [None]
